FAERS Safety Report 7508576-2 (Version None)
Quarter: 2011Q2

REPORT INFORMATION
  Report Type: 
  Country: None (occurrence: None)
  Receive Date: 20110527
  Receipt Date: 20110517
  Transmission Date: 20111010
  Serious: Yes (Hospitalization)
  Sender: FDA-Public Use
  Company Number: JP-ABBOTT-11P-087-0726428-00

PATIENT
  Age: 26 Year
  Sex: Female

DRUGS (7)
  1. CEFZON [Suspect]
     Indication: INFECTION PROPHYLAXIS
     Dosage: DAILY DOSE: 300MG
     Route: 048
     Dates: start: 20110423, end: 20110423
  2. CEFZON [Suspect]
     Indication: TOOTH EXTRACTION
  3. NEOSTELIN GREEN [Concomitant]
     Indication: PRODUCT USED FOR UNKNOWN INDICATION
     Dosage: MOUTH WASH
     Dates: start: 20110423
  4. LOXONIN [Concomitant]
     Indication: PRODUCT USED FOR UNKNOWN INDICATION
     Route: 048
  5. ALLEGRA [Concomitant]
     Indication: PRODUCT USED FOR UNKNOWN INDICATION
  6. GENTACIN [Concomitant]
     Indication: PRODUCT USED FOR UNKNOWN INDICATION
  7. HISTALIZINE [Concomitant]
     Indication: PRODUCT USED FOR UNKNOWN INDICATION
     Route: 048

REACTIONS (8)
  - DECREASED APPETITE [None]
  - DIARRHOEA [None]
  - PALPITATIONS [None]
  - NAUSEA [None]
  - FAECES DISCOLOURED [None]
  - ABDOMINAL DISCOMFORT [None]
  - ANAEMIA [None]
  - DIZZINESS [None]
